FAERS Safety Report 10505788 (Version 2)
Quarter: 2014Q4

REPORT INFORMATION
  Report Type: Report from Study
  Country: DE (occurrence: DE)
  Receive Date: 20141008
  Receipt Date: 20141218
  Transmission Date: 20150528
  Serious: Yes (Other)
  Sender: FDA-Public Use
  Company Number: PHHY2014DE129739

PATIENT
  Sex: Male

DRUGS (8)
  1. DEKRISTOL [Concomitant]
     Active Substance: CHOLECALCIFEROL
     Indication: PROPHYLAXIS
     Dosage: 20000 IU, QW
     Route: 048
     Dates: start: 20140122
  2. VOLON A40 [Concomitant]
     Indication: PROPHYLAXIS
     Dosage: 40 MG, 1X8 WEEKS
     Route: 042
     Dates: start: 20100811
  3. UBRETID [Concomitant]
     Active Substance: DISTIGMINE BROMIDE
     Indication: RESIDUAL URINE VOLUME INCREASED
     Dosage: 50 MG, BID
     Route: 048
     Dates: start: 201306
  4. ZOPICLODURA [Concomitant]
     Active Substance: ZOPICLONE
     Indication: SLEEP DISORDER
     Dosage: 75 MG, PRN
     Route: 048
     Dates: start: 20100415
  5. TAMSULOSIN [Concomitant]
     Active Substance: TAMSULOSIN
     Indication: RESIDUAL URINE VOLUME INCREASED
     Dosage: 40 UG, QD
     Route: 048
     Dates: start: 201211
  6. MICTONORM [Concomitant]
     Active Substance: PROPIVERINE HYDROCHLORIDE
     Indication: RESIDUAL URINE VOLUME INCREASED
     Dosage: 40 MG, BID
     Route: 048
     Dates: start: 201211, end: 201304
  7. GILENYA [Suspect]
     Active Substance: FINGOLIMOD HYDROCHLORIDE
     Indication: MULTIPLE SCLEROSIS
     Dosage: 0.5 MG, QD
     Route: 048
     Dates: start: 20110818
  8. IBUPROFEN. [Concomitant]
     Active Substance: IBUPROFEN
     Indication: PROPHYLAXIS
     Dosage: 600 MG, PRN
     Route: 048
     Dates: start: 2007

REACTIONS (1)
  - Normal tension glaucoma [Not Recovered/Not Resolved]

NARRATIVE: CASE EVENT DATE: 20140918
